FAERS Safety Report 4424808-1 (Version None)
Quarter: 2004Q3

REPORT INFORMATION
  Report Type: 
  Country: None (occurrence: None)
  Receive Date: 20040719
  Receipt Date: 20040302
  Transmission Date: 20050211
  Serious: Yes (Hospitalization)
  Sender: FDA-Public Use
  Company Number: 193541

PATIENT
  Age: 51 Year
  Sex: Female
  Weight: 62.5964 kg

DRUGS (12)
  1. AVONEX [Suspect]
     Indication: MULTIPLE SCLEROSIS
     Dosage: 30 MCG QW IM
     Route: 030
     Dates: start: 19970101, end: 20030101
  2. AVONEX [Suspect]
     Indication: MULTIPLE SCLEROSIS
     Dosage: 30 MCG QW IM
     Route: 030
     Dates: start: 20030101
  3. INDERAL [Concomitant]
  4. FIORICET [Concomitant]
  5. PREMARIN [Concomitant]
  6. DITROPAN [Concomitant]
  7. QUININE SULFATE [Concomitant]
  8. COMPAZINE [Concomitant]
  9. PROZAC [Concomitant]
  10. DEPAKOTE [Concomitant]
  11. MOTRIN [Concomitant]
  12. TEMAZEPAM [Concomitant]

REACTIONS (9)
  - AMNESIA [None]
  - BLOOD CHOLESTEROL INCREASED [None]
  - DEPRESSION [None]
  - FATIGUE [None]
  - INJECTION SITE ERYTHEMA [None]
  - INJECTION SITE HAEMORRHAGE [None]
  - MULTIPLE SCLEROSIS RELAPSE [None]
  - PITTING OEDEMA [None]
  - WEIGHT INCREASED [None]
